FAERS Safety Report 21213481 (Version 1)
Quarter: 2022Q3

REPORT INFORMATION
  Report Type: Spontaneous
  Country: IT (occurrence: IT)
  Receive Date: 20220815
  Receipt Date: 20220815
  Transmission Date: 20221026
  Serious: No
  Sender: FDA-Public Use
  Company Number: IT-JNJFOC-20220752282

PATIENT
  Age: 33 Year
  Sex: Male
  Weight: 88 kg

DRUGS (3)
  1. FENTANYL [Suspect]
     Active Substance: FENTANYL
     Indication: Sciatica
     Dosage: STRENGTH 50.00 MCG/HR
     Route: 062
  2. FENTANYL [Suspect]
     Active Substance: FENTANYL
  3. FENTANYL [Suspect]
     Active Substance: FENTANYL

REACTIONS (7)
  - Product adhesion issue [Unknown]
  - Confusional state [Unknown]
  - Asthenia [Unknown]
  - Therapeutic product effect decreased [Unknown]
  - Underdose [Unknown]
  - Irritability [Unknown]
  - Laziness [Unknown]
